FAERS Safety Report 9631965 (Version 1)
Quarter: 2013Q4

REPORT INFORMATION
  Report Type: Spontaneous
  Country: US (occurrence: US)
  Receive Date: 20131018
  Receipt Date: 20131018
  Transmission Date: 20140711
  Serious: Yes (Other)
  Sender: FDA-Public Use
  Company Number: US-BAYER-2013-124154

PATIENT
  Age: 32 Year
  Sex: Female

DRUGS (1)
  1. MIRENA [Suspect]
     Dosage: 20 MCG/24HR, CONT
     Route: 015
     Dates: start: 200903

REACTIONS (7)
  - Genital haemorrhage [Recovered/Resolved]
  - Device dislocation [None]
  - Feeling abnormal [None]
  - Nausea [None]
  - Pregnancy with contraceptive device [None]
  - Drug ineffective [None]
  - Uterine haemorrhage [None]
